FAERS Safety Report 21389577 (Version 1)
Quarter: 2022Q3

REPORT INFORMATION
  Report Type: Spontaneous
  Country: DE (occurrence: DE)
  Receive Date: 20220929
  Receipt Date: 20220929
  Transmission Date: 20221027
  Serious: Yes (Hospitalization, Other)
  Sender: FDA-Public Use
  Company Number: DE-ADRED-05701-01

PATIENT
  Age: 83 Year
  Sex: Female
  Weight: 70 kg

DRUGS (2)
  1. IBUPROFEN [Suspect]
     Active Substance: IBUPROFEN
     Indication: Product used for unknown indication
     Dosage: 600 MG, REQUIREMENT
     Route: 048
  2. METOPROLOL [Suspect]
     Active Substance: METOPROLOL
     Indication: Product used for unknown indication
     Dosage: 95 MG, 1-0-0-0, PROLONGED-RELEASE TABLETS
     Route: 048

REACTIONS (7)
  - Hepatic enzyme increased [Unknown]
  - Weight decreased [Unknown]
  - Decreased appetite [Unknown]
  - Pain [Unknown]
  - Melaena [Unknown]
  - Diarrhoea [Unknown]
  - Product administration error [Unknown]
